FAERS Safety Report 9163023 (Version 1)
Quarter: 2013Q1

REPORT INFORMATION
  Report Type: Spontaneous
  Country: US (occurrence: US)
  Receive Date: 20130314
  Receipt Date: 20130314
  Transmission Date: 20140127
  Serious: No
  Sender: FDA-Public Use
  Company Number: US-ASTRAZENECA-2013SE10916

PATIENT
  Sex: Female

DRUGS (6)
  1. NEXIUM [Suspect]
     Indication: ULCER HAEMORRHAGE
     Route: 048
  2. NEXIUM [Suspect]
     Indication: ULCER HAEMORRHAGE
     Route: 048
  3. NEXIUM [Suspect]
     Indication: ULCER HAEMORRHAGE
     Route: 048
  4. MYLANTA [Concomitant]
     Dosage: GENERIC
  5. TOTAL PARENTERAL NUTRITION [Concomitant]
     Indication: MALABSORPTION
  6. OTC MEDICATIONS [Concomitant]

REACTIONS (5)
  - Gastric disorder [Unknown]
  - Diarrhoea [Unknown]
  - Abdominal pain upper [Unknown]
  - Off label use [Unknown]
  - Off label use [Unknown]
